FAERS Safety Report 4543088-X (Version None)
Quarter: 2004Q4

REPORT INFORMATION
  Report Type: 
  Country: None (occurrence: None)
  Receive Date: 20041229
  Receipt Date: 20041220
  Transmission Date: 20050328
  Serious: Yes (Life-Threatening, Hospitalization)
  Sender: FDA-Public Use
  Company Number: DE-2004-035231

PATIENT
  Age: 64 Year
  Sex: Female
  Weight: 130 kg

DRUGS (8)
  1. ULTRAVIST 300 [Suspect]
     Indication: SCAN BRAIN
     Dosage: 50 ML, 1 DOSE, INTRAVENOUS
     Route: 042
     Dates: start: 20041104
  2. DIGITOXIN TAB [Concomitant]
  3. ALDACTONE [Concomitant]
  4. UNAT (TORASEMIDE) [Concomitant]
  5. DIFLUCAN [Concomitant]
  6. INSUMAN RAPID /GFR/(INSULIN HUMAN) [Concomitant]
  7. LANTUS [Concomitant]
  8. CLEXANE /GFR/(HEPARIN-FRACTION, SODIUM SALT) [Concomitant]

REACTIONS (14)
  - ANAPHYLACTIC SHOCK [None]
  - BRONCHOPNEUMONIA [None]
  - BUNDLE BRANCH BLOCK RIGHT [None]
  - CARDIO-RESPIRATORY ARREST [None]
  - CARDIOMEGALY [None]
  - CONDITION AGGRAVATED [None]
  - CONTRAST MEDIA REACTION [None]
  - CYANOSIS [None]
  - DIABETES MELLITUS NON-INSULIN-DEPENDENT [None]
  - DRUG INTOLERANCE [None]
  - ELECTROCARDIOGRAM REPOLARISATION ABNORMALITY [None]
  - ILEUS PARALYTIC [None]
  - MITRAL VALVE INCOMPETENCE [None]
  - RESPIRATORY FAILURE [None]
